FAERS Safety Report 7905510-8 (Version None)
Quarter: 2011Q4

REPORT INFORMATION
  Report Type: 
  Country: None (occurrence: None)
  Receive Date: 20111110
  Receipt Date: 20111031
  Transmission Date: 20120403
  Serious: No
  Sender: FDA-Public Use
  Company Number: US-BIOGENIDEC-2011BI021396

PATIENT
  Sex: Female

DRUGS (5)
  1. TYSABRI [Suspect]
     Indication: MULTIPLE SCLEROSIS
     Route: 042
     Dates: start: 20090320, end: 20110516
  2. AVONEX [Concomitant]
     Route: 030
     Dates: start: 20031019
  3. AVONEX [Concomitant]
     Route: 030
     Dates: start: 20080408, end: 20090215
  4. AVONEX [Concomitant]
     Route: 030
     Dates: start: 20110827
  5. AVONEX [Concomitant]
     Indication: MULTIPLE SCLEROSIS
     Route: 030
     Dates: start: 20090301

REACTIONS (6)
  - WEIGHT FLUCTUATION [None]
  - EMOTIONAL DISORDER [None]
  - AMNESIA [None]
  - ALOPECIA [None]
  - DEPRESSED MOOD [None]
  - COGNITIVE DISORDER [None]
